FAERS Safety Report 17424010 (Version 1)
Quarter: 2020Q1

REPORT INFORMATION
  Report Type: Spontaneous
  Country: TR (occurrence: TR)
  Receive Date: 20200217
  Receipt Date: 20200217
  Transmission Date: 20200409
  Serious: Yes (Death, Hospitalization, Other)
  Sender: FDA-Public Use
  Company Number: TR-ABBVIE-20K-161-3278552-00

PATIENT
  Age: 80 Year
  Sex: Female

DRUGS (2)
  1. IMBRUVICA [Suspect]
     Active Substance: IBRUTINIB
     Indication: CHRONIC LYMPHOCYTIC LEUKAEMIA
     Dosage: IMBRUVICA 140 MG?3X1
     Route: 048
  2. IMBRUVICA [Suspect]
     Active Substance: IBRUTINIB
     Dosage: IMBRUVICA 140 MG?2X1
     Route: 048

REACTIONS (11)
  - Hepatic haemorrhage [Unknown]
  - Asthenia [Unknown]
  - Hepatic enzyme increased [Unknown]
  - Myocardial infarction [Fatal]
  - Vomiting [Unknown]
  - Eye infection [Unknown]
  - Haematochezia [Unknown]
  - Anaemia [Unknown]
  - Decreased appetite [Unknown]
  - Epistaxis [Unknown]
  - Ear haemorrhage [Unknown]
